FAERS Safety Report 4584356-5 (Version None)
Quarter: 2005Q1

REPORT INFORMATION
  Report Type: 
  Country: None (occurrence: None)
  Receive Date: 20050216
  Receipt Date: 20050215
  Transmission Date: 20050727
  Serious: Yes (Hospitalization)
  Sender: FDA-Public Use
  Company Number: GB-BRISTOL-MYERS SQUIBB COMPANY-12863395

PATIENT
  Age: 65 Year
  Sex: Female
  Weight: 85 kg

DRUGS (4)
  1. CYCLOPHOSPHAMIDE [Suspect]
     Indication: BREAST CANCER
     Route: 042
     Dates: start: 20040917, end: 20040917
  2. PACLITAXEL [Suspect]
     Indication: BREAST CANCER
     Route: 042
     Dates: start: 20041217, end: 20041217
  3. EPIRUBICIN [Suspect]
     Indication: BREAST CANCER
     Route: 042
     Dates: start: 20040917, end: 20040917
  4. ARIMIDEX [Concomitant]
     Dates: start: 20050121

REACTIONS (2)
  - ATRIAL FIBRILLATION [None]
  - VENTRICULAR DYSFUNCTION [None]
